FAERS Safety Report 5939200-8 (Version None)
Quarter: 2008Q4

REPORT INFORMATION
  Report Type: 
  Country: None (occurrence: None)
  Receive Date: 20081103
  Receipt Date: 20081027
  Transmission Date: 20090506
  Serious: Yes (Hospitalization)
  Sender: FDA-Public Use
  Company Number: FR-PFIZER INC-2008052235

PATIENT
  Sex: Female
  Weight: 54 kg

DRUGS (2)
  1. CHAMPIX [Suspect]
     Indication: SMOKING CESSATION THERAPY
     Dates: start: 20070825, end: 20071216
  2. IMPLANON [Concomitant]
     Route: 058
     Dates: start: 20050101

REACTIONS (2)
  - ANGIOEDEMA [None]
  - URTICARIA [None]
